FAERS Safety Report 8021956-4 (Version None)
Quarter: 2012Q1

REPORT INFORMATION
  Report Type: 
  Country: None (occurrence: None)
  Receive Date: 20120104
  Receipt Date: 20111230
  Transmission Date: 20120608
  Serious: Yes (Congenital Anomaly, Other)
  Sender: FDA-Public Use
  Company Number: PHHY2011FR114045

PATIENT

DRUGS (2)
  1. METHADONE HCL [Suspect]
     Route: 064
  2. CODEINE PHOSPHATE [Suspect]
     Route: 064

REACTIONS (8)
  - CONGENITAL HAND MALFORMATION [None]
  - SYNDACTYLY [None]
  - DEFORMITY THORAX [None]
  - DYSMORPHISM [None]
  - FOETAL EXPOSURE DURING PREGNANCY [None]
  - LIMB MALFORMATION [None]
  - CONGENITAL CYSTIC KIDNEY DISEASE [None]
  - MICROPENIS [None]
